FAERS Safety Report 5106485-X (Version None)
Quarter: 2006Q3

REPORT INFORMATION
  Report Type: 
  Country: None (occurrence: None)
  Receive Date: 20060918
  Receipt Date: 20060907
  Transmission Date: 20061208
  Serious: Yes (Hospitalization)
  Sender: FDA-Public Use
  Company Number: AT-ROCHE-462235

PATIENT
  Age: 66 Year
  Sex: Male
  Weight: 84 kg

DRUGS (9)
  1. CAPECITABINE [Suspect]
     Route: 048
     Dates: start: 20060821, end: 20060825
  2. CAPECITABINE [Suspect]
     Route: 048
  3. ERBITUX [Suspect]
     Dosage: FREQUENCY REPORTED AS 1X.
     Route: 042
     Dates: start: 20060821, end: 20060821
  4. ERBITUX [Suspect]
     Dosage: FREQUENCY REPORTED AS 1X.
     Route: 042
  5. DIAMICRON [Concomitant]
     Dates: start: 20030615
  6. GLUCOPHAGE [Concomitant]
     Dates: start: 20060808
  7. FAVISTAN [Concomitant]
     Dates: start: 20060808
  8. SELOKEN [Concomitant]
     Dates: start: 20060808
  9. HYLAK [Concomitant]
     Dosage: DAILY DOSE REPORTED AS ^60GGT^.
     Dates: start: 20060808

REACTIONS (2)
  - ABSCESS [None]
  - EPIDIDYMITIS [None]
